FAERS Safety Report 9325130 (Version 1)
Quarter: 2013Q2

REPORT INFORMATION
  Report Type: Spontaneous
  Country: US (occurrence: US)
  Receive Date: 20130603
  Receipt Date: 20130603
  Transmission Date: 20140414
  Serious: Yes (Hospitalization)
  Sender: FDA-Public Use
  Company Number: US-RB-054497-13

PATIENT
  Age: 43 Year
  Sex: Female

DRUGS (1)
  1. GENERIC BUPRENORPHINE [Suspect]
     Indication: DRUG DEPENDENCE
     Route: 060
     Dates: start: 2011, end: 20130510

REACTIONS (2)
  - Uterine leiomyoma [Recovered/Resolved]
  - Drug withdrawal syndrome [Not Recovered/Not Resolved]
